FAERS Safety Report 21874486 (Version 1)
Quarter: 2023Q1

REPORT INFORMATION
  Report Type: Spontaneous
  Country: US (occurrence: None)
  Receive Date: 20230117
  Receipt Date: 20230117
  Transmission Date: 20230418
  Serious: Yes (Other)
  Sender: FDA-Public Use
  Company Number: 2023A004120

PATIENT
  Age: 75 Year
  Sex: Female

DRUGS (2)
  1. FASLODEX [Suspect]
     Active Substance: FULVESTRANT
     Route: 030
  2. IBRANCE [Suspect]
     Active Substance: PALBOCICLIB
     Indication: Invasive lobular breast carcinoma
     Dosage: 100.0MG UNKNOWN
     Route: 048
     Dates: start: 20210930

REACTIONS (5)
  - Breast cancer metastatic [Unknown]
  - Metastases to bone [Unknown]
  - Metastases to liver [Unknown]
  - Diarrhoea [Unknown]
  - Fatigue [Unknown]
